FAERS Safety Report 8473667-9 (Version None)
Quarter: 2012Q2

REPORT INFORMATION
  Report Type: 
  Country: None (occurrence: None)
  Receive Date: 20120628
  Receipt Date: 20110912
  Transmission Date: 20120825
  Serious: Yes (Death)
  Sender: FDA-Public Use
  Company Number: US-MYLANLABS-2011S1017160

PATIENT
  Age: 73 Year
  Sex: Male
  Weight: 65.32 kg

DRUGS (14)
  1. SINEMET [Concomitant]
     Dosage: 50/200MG TABLET
  2. VALIUM [Concomitant]
  3. GLYCOLAX [Concomitant]
     Dosage: 1-3 TEASPOONS 2 - 3 TIMES PER DAY
  4. NAMENDA [Concomitant]
  5. CLOZAPINE [Suspect]
     Indication: PSYCHOTIC DISORDER
     Dates: start: 20110601, end: 20110730
  6. VITAMIN D [Concomitant]
  7. LOVAZA [Concomitant]
  8. CLOZAPINE [Suspect]
     Indication: AGITATION
     Dates: start: 20110601, end: 20110730
  9. ROXANOL [Concomitant]
  10. SEROQUEL [Concomitant]
  11. CELEXA [Concomitant]
  12. AMBIEN [Concomitant]
  13. VITAMIN B COMPLEX CAP [Concomitant]
  14. PROSCAR [Concomitant]

REACTIONS (1)
  - NEOPLASM MALIGNANT [None]
